FAERS Safety Report 10898818 (Version 3)
Quarter: 2015Q4

REPORT INFORMATION
  Report Type: Report from Study
  Country: AU (occurrence: AU)
  Receive Date: 20150309
  Receipt Date: 20151228
  Transmission Date: 20160304
  Serious: Yes (Other)
  Sender: FDA-Public Use
  Company Number: AU-ABBVIE-15P-008-1353733-00

PATIENT
  Age: 32 Year
  Sex: Male
  Weight: 76 kg

DRUGS (5)
  1. NAPROSYN [Concomitant]
     Active Substance: NAPROXEN
     Indication: AXIAL SPONDYLOARTHRITIS
     Route: 048
     Dates: start: 20131101
  2. OMEPRAZOLE. [Concomitant]
     Active Substance: OMEPRAZOLE
     Indication: DYSPEPSIA
     Route: 048
     Dates: start: 20131101
  3. HUMIRA [Suspect]
     Active Substance: ADALIMUMAB
     Indication: AXIAL SPONDYLOARTHRITIS
     Route: 058
     Dates: start: 20140815, end: 20150206
  4. HUMIRA [Suspect]
     Active Substance: ADALIMUMAB
     Route: 058
     Dates: start: 20150317
  5. OMEPRAZOLE. [Concomitant]
     Active Substance: OMEPRAZOLE
     Indication: PROPHYLAXIS

REACTIONS (1)
  - Bursitis [Recovered/Resolved]

NARRATIVE: CASE EVENT DATE: 20150217
